FAERS Safety Report 9946906 (Version 1)
Quarter: 2014Q1

REPORT INFORMATION
  Report Type: Report from Study
  Country: US (occurrence: US)
  Receive Date: 20140303
  Receipt Date: 20140303
  Transmission Date: 20141002
  Serious: No
  Sender: FDA-Public Use
  Company Number: US-ABBVIE-13P-163-1063612-00

PATIENT
  Age: 63 Year
  Sex: Female

DRUGS (6)
  1. HUMIRA [Suspect]
     Indication: PITYRIASIS
     Dates: start: 20121128
  2. XANAX [Concomitant]
     Indication: PRURITUS
  3. VITAMIN B-6 [Concomitant]
     Indication: ARRHYTHMIA
  4. FOLIC ACID [Concomitant]
     Indication: VITAMIN SUPPLEMENTATION
  5. TYLENOL EXTRA STRENGTH [Concomitant]
     Indication: PAIN
  6. PSORIATANE [Concomitant]
     Indication: PITYRIASIS
     Dates: end: 20130211

REACTIONS (7)
  - Swelling face [Unknown]
  - Injection site erythema [Recovering/Resolving]
  - Injection site inflammation [Recovering/Resolving]
  - Lip blister [Unknown]
  - Rash [Unknown]
  - Hepatic enzyme increased [Recovering/Resolving]
  - Injection site pain [Recovering/Resolving]
